FAERS Safety Report 8796285 (Version 1)
Quarter: 2012Q4

REPORT INFORMATION
  Report Type: 
  Country: US (occurrence: US)
  Receive Date: 20120920
  Receipt Date: 20120920
  Transmission Date: 20130627
  Serious: Yes (Life-Threatening, Hospitalization, Other)
  Sender: FDA-Public Use
  Company Number: US-009507513-1209USA005874

PATIENT
  Age: 54 Year
  Sex: Female

DRUGS (1)
  1. SAPHRIS [Suspect]
     Route: 048

REACTIONS (5)
  - Cardiac arrest [Unknown]
  - Renal failure acute [Unknown]
  - Acid base balance abnormal [Unknown]
  - Hyponatraemia [Unknown]
  - Bradycardia [Unknown]
